FAERS Safety Report 7313328-2 (Version None)
Quarter: 2011Q1

REPORT INFORMATION
  Report Type: 
  Country: None (occurrence: None)
  Receive Date: 20110225
  Receipt Date: 20101210
  Transmission Date: 20110831
  Serious: No
  Sender: FDA-Public Use
  Company Number: US-MYLANLABS-2010S1022837

PATIENT
  Age: 60 Year
  Sex: Female
  Weight: 65.77 kg

DRUGS (4)
  1. METFORMIN HCL [Suspect]
     Indication: DIABETES MELLITUS
     Route: 048
     Dates: start: 20101101
  2. LIPITOR [Concomitant]
     Indication: BLOOD CHOLESTEROL INCREASED
  3. GLIPIZIDE [Concomitant]
     Indication: DIABETES MELLITUS
  4. LISINOPRIL [Concomitant]
     Indication: BLOOD PRESSURE INCREASED

REACTIONS (2)
  - DRUG INEFFECTIVE [None]
  - BLOOD GLUCOSE INCREASED [None]
